FAERS Safety Report 20184392 (Version 1)
Quarter: 2021Q4

REPORT INFORMATION
  Report Type: Spontaneous
  Country: US (occurrence: US)
  Receive Date: 20211214
  Receipt Date: 20211214
  Transmission Date: 20220303
  Serious: No
  Sender: FDA-Public Use
  Company Number: US-ENDO PHARMACEUTICALS INC-2020-007278

PATIENT
  Sex: Male

DRUGS (5)
  1. FROVATRIPTAN SUCCINATE [Suspect]
     Active Substance: FROVATRIPTAN SUCCINATE
     Indication: Migraine
     Dosage: UNK UNKNOWN, UNKNOWN
     Route: 065
  2. FROVATRIPTAN SUCCINATE [Suspect]
     Active Substance: FROVATRIPTAN SUCCINATE
     Dosage: UNK UNKNOWN, UNKNOWN
     Route: 065
     Dates: start: 20201016
  3. ASPIRIN                            /00002701/ [Concomitant]
     Indication: Migraine
     Dosage: UNK UNKNOWN, UNKNOWN
     Route: 065
     Dates: start: 20201016
  4. CAFFEINE [Concomitant]
     Active Substance: CAFFEINE
     Indication: Migraine
     Dosage: UNK UNKNOWN, UNKNOWN
     Route: 065
     Dates: start: 20201016
  5. NURTEC ODT [Concomitant]
     Active Substance: RIMEGEPANT SULFATE
     Indication: Product used for unknown indication
     Dosage: UNK UNKNOWN, UNKNOWN
     Route: 065

REACTIONS (1)
  - Drug ineffective [Unknown]
